FAERS Safety Report 10727930 (Version 9)
Quarter: 2016Q2

REPORT INFORMATION
  Report Type: Spontaneous
  Country: US (occurrence: US)
  Receive Date: 20150121
  Receipt Date: 20160613
  Transmission Date: 20160815
  Serious: Yes (Disabling)
  Sender: FDA-Public Use
  Company Number: US-009507513-1204USA04472

PATIENT
  Sex: Male
  Weight: 77.98 kg

DRUGS (4)
  1. ZOLOFT [Concomitant]
     Active Substance: SERTRALINE HYDROCHLORIDE
     Indication: ANXIETY
     Dosage: 50 MG, UNK
     Route: 065
     Dates: start: 2002, end: 201406
  2. FINASTERIDE. [Suspect]
     Active Substance: FINASTERIDE
     Indication: ALOPECIA
     Dosage: 5 MG, UNK
     Route: 048
     Dates: start: 20001128, end: 20091128
  3. PROPECIA [Suspect]
     Active Substance: FINASTERIDE
     Indication: ANDROGENETIC ALOPECIA
     Dosage: 1 MG, QD
     Route: 048
     Dates: start: 20050104, end: 20091121
  4. ZOLOFT [Concomitant]
     Active Substance: SERTRALINE HYDROCHLORIDE
     Indication: PREMATURE EJACULATION

REACTIONS (43)
  - Genital pain [Unknown]
  - Cardiac hypertrophy [Unknown]
  - Treatment noncompliance [Unknown]
  - Decreased appetite [Unknown]
  - Dilatation ventricular [Unknown]
  - Genital paraesthesia [Unknown]
  - Peyronie^s disease [Unknown]
  - Hypogonadism [Unknown]
  - Osteochondritis [Unknown]
  - Anxiety [Not Recovered/Not Resolved]
  - Erectile dysfunction [Not Recovered/Not Resolved]
  - Asthenia [Unknown]
  - Poor quality sleep [Unknown]
  - Sexual dysfunction [Not Recovered/Not Resolved]
  - Arterial insufficiency [Unknown]
  - Peripheral sensory neuropathy [Unknown]
  - Dihydrotestosterone decreased [Unknown]
  - Testicular pain [Unknown]
  - Deficiency anaemia [Unknown]
  - Discomfort [Unknown]
  - Patellofemoral pain syndrome [Unknown]
  - Ligament laxity [Unknown]
  - Pollakiuria [Unknown]
  - Vision blurred [Unknown]
  - Allodynia [Unknown]
  - Acne [Unknown]
  - Sexual dysfunction [Unknown]
  - Libido decreased [Unknown]
  - Depression [Not Recovered/Not Resolved]
  - Libido decreased [Not Recovered/Not Resolved]
  - Perineal injury [Unknown]
  - Fatigue [Unknown]
  - Full blood count abnormal [Unknown]
  - Affective disorder [Unknown]
  - Thirst decreased [Unknown]
  - Cognitive disorder [Not Recovered/Not Resolved]
  - Premature ejaculation [Not Recovered/Not Resolved]
  - Ejaculation failure [Not Recovered/Not Resolved]
  - Dizziness [Unknown]
  - Weight decreased [Unknown]
  - Bone cyst [Unknown]
  - Flushing [Unknown]
  - Seasonal allergy [Unknown]

NARRATIVE: CASE EVENT DATE: 2006
